FAERS Safety Report 4709640-3 (Version None)
Quarter: 2005Q3

REPORT INFORMATION
  Report Type: 
  Country: None (occurrence: None)
  Receive Date: 20050707
  Receipt Date: 20050624
  Transmission Date: 20060218
  Serious: Yes (Hospitalization, Other)
  Sender: FDA-Public Use
  Company Number: HQWYE132717NOV03

PATIENT
  Age: 41 Year
  Sex: Female
  Weight: 70.2 kg

DRUGS (7)
  1. RAPAMUNE [Suspect]
     Indication: PROPHYLAXIS AGAINST TRANSPLANT REJECTION
     Dosage: 4 MG 1X PER 1 DAY
     Dates: start: 20030928
  2. PROGRAF [Concomitant]
  3. BACTRIM [Concomitant]
  4. MYCELEX [Concomitant]
  5. ZANTAC [Concomitant]
  6. LOPRESSOR [Concomitant]
  7. NORVASC [Concomitant]

REACTIONS (5)
  - DEPRESSION [None]
  - HEADACHE [None]
  - RENAL IMPAIRMENT [None]
  - SUICIDAL IDEATION [None]
  - ULTRASOUND KIDNEY ABNORMAL [None]
